FAERS Safety Report 11058042 (Version 1)
Quarter: 2015Q2

REPORT INFORMATION
  Report Type: Spontaneous
  Country: US (occurrence: None)
  Receive Date: 20150422
  Receipt Date: 20150422
  Transmission Date: 20150821
  Serious: Yes (Death, Hospitalization)
  Sender: FDA-Public Use
  Company Number: None

PATIENT
  Age: 63 Year
  Sex: Female
  Weight: 95.4 kg

DRUGS (3)
  1. CYTARABINE. [Suspect]
     Active Substance: CYTARABINE
     Dates: end: 20141028
  2. IDARUBICIN [Suspect]
     Active Substance: IDARUBICIN
     Dates: end: 20141027
  3. PRAVASTATIN SODIUM. [Suspect]
     Active Substance: PRAVASTATIN SODIUM
     Dates: end: 20141028

REACTIONS (9)
  - Atelectasis [None]
  - Pleural effusion [None]
  - Septic embolus [None]
  - Lung infection [None]
  - Fluid overload [None]
  - Acute kidney injury [None]
  - Haematoma [None]
  - Respiratory distress [None]
  - Pulmonary oedema [None]

NARRATIVE: CASE EVENT DATE: 20141108
